FAERS Safety Report 23214592 (Version 2)
Quarter: 2023Q4

REPORT INFORMATION
  Report Type: Spontaneous
  Country: IT (occurrence: IT)
  Receive Date: 20231121
  Receipt Date: 20231128
  Transmission Date: 20240110
  Serious: Yes (Other)
  Sender: FDA-Public Use
  Company Number: IT-JNJFOC-20231140388

PATIENT
  Age: 59 Year
  Sex: Male

DRUGS (1)
  1. STELARA [Suspect]
     Active Substance: USTEKINUMAB
     Indication: Product used for unknown indication
     Dosage: STELARA 90 MG: 1 VIAL SC EVERY 12 WEEKS
     Route: 058
     Dates: start: 2014

REACTIONS (1)
  - Optic atrophy [Not Recovered/Not Resolved]
